FAERS Safety Report 9006524 (Version 2)
Quarter: 2013Q1

REPORT INFORMATION
  Report Type: Spontaneous
  Country: US (occurrence: US)
  Receive Date: 20130110
  Receipt Date: 20130326
  Transmission Date: 20140127
  Serious: Yes (Hospitalization)
  Sender: FDA-Public Use
  Company Number: US-BAYER-2013-002300

PATIENT
  Age: 22 Year
  Sex: Female

DRUGS (7)
  1. YAZ [Suspect]
  2. YASMIN [Suspect]
     Dosage: UNK
     Dates: start: 20080324
  3. CITALOPRAM [Concomitant]
     Dosage: UNK
     Route: 048
     Dates: start: 20080415
  4. GARDASIL [Concomitant]
     Dosage: UNK
     Dates: start: 20080211
  5. TORADOL [Concomitant]
     Indication: MESENTERIC VEIN THROMBOSIS
     Dosage: UNK
     Dates: start: 20080415
  6. MORPHINE [Concomitant]
     Indication: MESENTERIC VEIN THROMBOSIS
     Dosage: UNK
     Dates: start: 20080415
  7. ZOFRAN [Concomitant]
     Dosage: UNK
     Dates: start: 20080415

REACTIONS (1)
  - Mesenteric vein thrombosis [None]
